FAERS Safety Report 17094683 (Version 2)
Quarter: 2019Q4

REPORT INFORMATION
  Report Type: Report from Study
  Country: IT (occurrence: IT)
  Receive Date: 20191130
  Receipt Date: 20191211
  Transmission Date: 20200122
  Serious: Yes (Life-Threatening, Hospitalization, Other)
  Sender: FDA-Public Use
  Company Number: IT-AMGEN-ITACT2019197273

PATIENT
  Age: 60 Year
  Sex: Female
  Weight: 100 kg

DRUGS (8)
  1. IRINOTECAN [Suspect]
     Active Substance: IRINOTECAN
     Dosage: 300 MILLIGRAM (150MG/MG)
     Route: 042
     Dates: end: 20191113
  2. OXALIPLATINO [Suspect]
     Active Substance: OXALIPLATIN
     Indication: COLORECTAL CANCER METASTATIC
     Dosage: 150 MILLIGRAM (85MG/MG)
     Route: 042
     Dates: start: 20191030
  3. OXALIPLATINO [Suspect]
     Active Substance: OXALIPLATIN
     Dosage: 170 MILLIGRAM ((85/MG)
     Route: 042
     Dates: end: 20191113
  4. PANITUMUMAB [Suspect]
     Active Substance: PANITUMUMAB
     Indication: COLORECTAL CANCER METASTATIC
     Dosage: 600 MILLIGRAM (6 MG/KG)
     Route: 042
     Dates: start: 20191030, end: 20191113
  5. FLUOROURACILE [Suspect]
     Active Substance: FLUOROURACIL
     Dosage: 4800 MILLIGRAM (2400MG/MG)
     Route: 065
     Dates: end: 20191113
  6. EUTIROX [Concomitant]
     Active Substance: LEVOTHYROXINE SODIUM
     Indication: HYPERTHYROIDISM
     Dosage: UNK
  7. IRINOTECAN [Suspect]
     Active Substance: IRINOTECAN
     Indication: COLORECTAL CANCER METASTATIC
     Dosage: 270 MILLIGRAM (150MG/MG)
     Route: 042
     Dates: start: 20191030
  8. FLUOROURACILE [Suspect]
     Active Substance: FLUOROURACIL
     Indication: COLORECTAL CANCER METASTATIC
     Dosage: 4300 MILLIGRAM (2400MG/MG)
     Route: 065
     Dates: start: 20191030

REACTIONS (3)
  - Vomiting [Not Recovered/Not Resolved]
  - Febrile neutropenia [Recovered/Resolved]
  - Diarrhoea [Not Recovered/Not Resolved]

NARRATIVE: CASE EVENT DATE: 20191121
